FAERS Safety Report 4699517-4 (Version None)
Quarter: 2005Q2

REPORT INFORMATION
  Report Type: 
  Country: None (occurrence: None)
  Receive Date: 20050624
  Receipt Date: 20050616
  Transmission Date: 20051028
  Serious: Yes (Disabling)
  Sender: FDA-Public Use
  Company Number: PHBS2005IT08852

PATIENT
  Age: 51 Year
  Sex: Female

DRUGS (3)
  1. TAMOXIFEN [Concomitant]
     Indication: BREAST CANCER
     Dosage: 20 MG/D
     Route: 048
     Dates: start: 20040501, end: 20041001
  2. FEMARA [Concomitant]
     Indication: BREAST CANCER
     Dosage: 2.5 MG/D
     Route: 048
     Dates: start: 20041001, end: 20050601
  3. ZOMETA [Suspect]
     Indication: METASTASES TO BONE
     Dosage: 4 MG, QMO
     Route: 042
     Dates: start: 20020524, end: 20050411

REACTIONS (2)
  - ASEPTIC NECROSIS BONE [None]
  - BONE DEBRIDEMENT [None]
